FAERS Safety Report 8628708 (Version 2)
Quarter: 2013Q4

REPORT INFORMATION
  Report Type: Report from Study
  Country: US (occurrence: US)
  Receive Date: 20120621
  Receipt Date: 20131216
  Transmission Date: 20140711
  Serious: Yes (Death)
  Sender: FDA-Public Use
  Company Number: US-ROCHE-1080359

PATIENT
  Sex: Male

DRUGS (10)
  1. AVASTIN [Suspect]
     Indication: SALIVARY GLAND CANCER
     Route: 042
     Dates: start: 20110706
  2. AVASTIN [Suspect]
     Indication: BONE CANCER
     Route: 042
     Dates: start: 20110927
  3. AVASTIN [Suspect]
     Indication: BONE CANCER
  4. TAXOL [Concomitant]
     Route: 042
     Dates: start: 20110706
  5. ALOXI [Concomitant]
     Route: 042
     Dates: start: 20110706
  6. DECADRON [Concomitant]
     Route: 042
  7. BENADRYL (UNITED STATES) [Concomitant]
     Route: 042
  8. ZANTAC [Concomitant]
     Route: 042
  9. ABRAXANE [Concomitant]
     Route: 040
     Dates: start: 20110815
  10. ZOMETA [Concomitant]
     Route: 040
     Dates: start: 20110815

REACTIONS (1)
  - Death [Fatal]
